FAERS Safety Report 21020986 (Version 1)
Quarter: 2022Q2

REPORT INFORMATION
  Report Type: Spontaneous
  Country: NZ (occurrence: NZ)
  Receive Date: 20220629
  Receipt Date: 20220629
  Transmission Date: 20220720
  Serious: Yes (Death, Hospitalization, Other)
  Sender: FDA-Public Use
  Company Number: NZ-ALKEM LABORATORIES LIMITED-RU-ALKEM-2022-06538

PATIENT
  Age: 34 Year
  Sex: Male

DRUGS (4)
  1. AZATHIOPRINE [Suspect]
     Active Substance: AZATHIOPRINE
     Indication: Kidney transplant rejection
     Dosage: 75 MILLIGRAM DAILY MEAN DOSE
     Route: 065
  2. PREDNISONE [Suspect]
     Active Substance: PREDNISONE
     Indication: Kidney transplant rejection
     Dosage: 60 MILLIGRAM DAILY (MEAN DOSE FOR FIRST THREE MONTHS)
     Route: 065
  3. PREDNISONE [Suspect]
     Active Substance: PREDNISONE
     Dosage: 30 MILLIGRAM DAILY
     Route: 065
  4. CACTINOMYCIN [Suspect]
     Active Substance: CACTINOMYCIN
     Indication: Kidney transplant rejection
     Dosage: 400 MICROGRAM, THREE TIMES
     Route: 065

REACTIONS (3)
  - Diffuse large B-cell lymphoma [Fatal]
  - Herpes simplex [None]
  - Candida infection [None]
